FAERS Safety Report 7945001-1 (Version None)
Quarter: 2011Q4

REPORT INFORMATION
  Report Type: 
  Country: None (occurrence: None)
  Receive Date: 20111129
  Receipt Date: 20111123
  Transmission Date: 20120403
  Serious: No
  Sender: FDA-Public Use
  Company Number: US-BAYER-2011-113921

PATIENT

DRUGS (2)
  1. TYLENOL (CAPLET) [Suspect]
  2. ALEVE (CAPLET) [Suspect]
     Route: 048

REACTIONS (1)
  - NO ADVERSE EVENT [None]
